FAERS Safety Report 20368230 (Version 5)
Quarter: 2022Q1

REPORT INFORMATION
  Report Type: Spontaneous
  Country: US (occurrence: US)
  Receive Date: 20220124
  Receipt Date: 20220307
  Transmission Date: 20220424
  Serious: Yes (Hospitalization)
  Sender: FDA-Public Use
  Company Number: US-AMGEN-USASP2022010515

PATIENT
  Age: 82 Year
  Sex: Female

DRUGS (1)
  1. AIMOVIG [Suspect]
     Active Substance: ERENUMAB-AOOE
     Indication: Product used for unknown indication
     Dosage: 70 MILLIGRAM
     Route: 065

REACTIONS (7)
  - Fall [Unknown]
  - Rib fracture [Unknown]
  - Device difficult to use [Unknown]
  - Confusional state [Unknown]
  - Incorrect disposal of product [Unknown]
  - Product temperature excursion issue [Unknown]
  - Migraine [Unknown]

NARRATIVE: CASE EVENT DATE: 20220120
